FAERS Safety Report 16845260 (Version 1)
Quarter: 2019Q3

REPORT INFORMATION
  Report Type: Other
  Country: CA (occurrence: CA)
  Receive Date: 20190924
  Receipt Date: 20190924
  Transmission Date: 20191005
  Serious: Yes (Other)
  Sender: FDA-Public Use
  Company Number: CA-APOTEX-2019AP022201

PATIENT
  Age: 74 Year
  Sex: Female

DRUGS (1)
  1. APO-RISEDRONATE [Suspect]
     Active Substance: RISEDRONATE SODIUM
     Indication: OSTEOPOROSIS
     Dosage: 150.0 MG, Q.WK.
     Route: 048

REACTIONS (2)
  - Vomiting [Recovering/Resolving]
  - Product substitution issue [Recovering/Resolving]
